FAERS Safety Report 20248127 (Version 2)
Quarter: 2022Q1

REPORT INFORMATION
  Report Type: Spontaneous
  Country: CN (occurrence: CN)
  Receive Date: 20211229
  Receipt Date: 20220120
  Transmission Date: 20220423
  Serious: Yes (Disabling)
  Sender: FDA-Public Use
  Company Number: CN-SA-SAC20211227001285

PATIENT
  Age: 68 Year
  Sex: Male
  Weight: 44.3 kg

DRUGS (2)
  1. ELOXATIN [Suspect]
     Active Substance: OXALIPLATIN
     Indication: Gastric cancer
     Dosage: 150 MG, QD
     Route: 041
     Dates: start: 20211213, end: 20211213
  2. DOCETAXEL [Suspect]
     Active Substance: DOCETAXEL
     Indication: Gastric cancer
     Dosage: 100 MG, QD
     Route: 041
     Dates: start: 20211213, end: 20211213

REACTIONS (2)
  - White blood cell count decreased [Recovering/Resolving]
  - Infusion related hypersensitivity reaction [Recovering/Resolving]

NARRATIVE: CASE EVENT DATE: 20211213
